FAERS Safety Report 12086166 (Version 1)
Quarter: 2016Q1

REPORT INFORMATION
  Report Type: Spontaneous
  Country: GB (occurrence: GB)
  Receive Date: 20160217
  Receipt Date: 20160217
  Transmission Date: 20160526
  Serious: Yes (Hospitalization)
  Sender: FDA-Public Use
  Company Number: GB-TEVA-633519ACC

PATIENT
  Age: 89 Year
  Sex: Female
  Weight: 87 kg

DRUGS (11)
  1. SPIRONOLACTONE. [Concomitant]
     Active Substance: SPIRONOLACTONE
  2. CALCICHEW D3 [Concomitant]
     Active Substance: CALCIUM\CHOLECALCIFEROL
  3. TICAGRELOR [Concomitant]
     Active Substance: TICAGRELOR
  4. ACTAVIS UK ASPIRIN [Concomitant]
  5. VENTOLIN [Concomitant]
     Active Substance: ALBUTEROL SULFATE
  6. FUROSEMIDE. [Suspect]
     Active Substance: FUROSEMIDE
     Indication: CHRONIC OBSTRUCTIVE PULMONARY DISEASE
     Dosage: 80MG IN THE MORNING 40MG LUNCH
     Route: 048
     Dates: start: 20160115
  7. PHYLLOCONTIN [Concomitant]
     Active Substance: AMINOPHYLLINE
  8. IPRATROPIUM [Concomitant]
     Active Substance: IPRATROPIUM
  9. ASTRA PHARMS OMEPRAZOLE [Concomitant]
  10. RAMIPRIL. [Concomitant]
     Active Substance: RAMIPRIL
  11. SERETIDE [Concomitant]
     Active Substance: FLUTICASONE FUROATE\SALMETEROL XINAFOATE

REACTIONS (6)
  - Malaise [Recovering/Resolving]
  - Lethargy [Recovering/Resolving]
  - Asthenia [Recovering/Resolving]
  - Acute kidney injury [Recovering/Resolving]
  - Hypophagia [Recovering/Resolving]
  - Dizziness [Recovering/Resolving]

NARRATIVE: CASE EVENT DATE: 20160115
